FAERS Safety Report 5910357-8 (Version None)
Quarter: 2008Q4

REPORT INFORMATION
  Report Type: 
  Country: None (occurrence: None)
  Receive Date: 20081007
  Receipt Date: 20071212
  Transmission Date: 20090506
  Serious: No
  Sender: FDA-Public Use
  Company Number: US-ASTRAZENECA-2007UW28305

PATIENT
  Age: 49 Year
  Sex: Female
  Weight: 77.1 kg

DRUGS (1)
  1. ARIMIDEX [Suspect]
     Indication: BREAST CANCER
     Route: 048
     Dates: start: 20071101, end: 20071210

REACTIONS (4)
  - ARTHRITIS [None]
  - FLUID RETENTION [None]
  - PAIN IN JAW [None]
  - TOOTHACHE [None]
